FAERS Safety Report 15607165 (Version 2)
Quarter: 2020Q3

REPORT INFORMATION
  Report Type: Spontaneous
  Country: None (occurrence: JP)
  Receive Date: 20181112
  Receipt Date: 20200828
  Transmission Date: 20201102
  Serious: Yes (Hospitalization, Other)
  Sender: FDA-Public Use
  Company Number: JP-ELI_LILLY_AND_COMPANY-JP201811000005

PATIENT
  Age: 70 Year
  Sex: Male

DRUGS (2)
  1. PACLITAXEL ALBUMIN [Suspect]
     Active Substance: PACLITAXEL
     Indication: PANCREATIC CARCINOMA
     Dosage: 125 MG/M2, OTHER
     Route: 041
  2. GEMZAR [Suspect]
     Active Substance: GEMCITABINE HYDROCHLORIDE
     Indication: PANCREATIC CARCINOMA
     Dosage: 1000 MG/M2, OTHER
     Route: 041

REACTIONS (7)
  - Vascular pseudoaneurysm ruptured [Recovering/Resolving]
  - Neutrophil count decreased [Unknown]
  - Tumour perforation [Unknown]
  - Platelet count decreased [Unknown]
  - Protein total decreased [Unknown]
  - Hypoalbuminaemia [Unknown]
  - White blood cell count decreased [Unknown]
